FAERS Safety Report 13307838 (Version 1)
Quarter: 2017Q1

REPORT INFORMATION
  Report Type: Spontaneous
  Country: US (occurrence: US)
  Receive Date: 20170308
  Receipt Date: 20170308
  Transmission Date: 20170428
  Serious: No
  Sender: FDA-Public Use
  Company Number: US-TEIKOKU PHARMA USA-TPU2017-00078

PATIENT
  Age: 78 Year
  Sex: Female
  Weight: 90.8 kg

DRUGS (1)
  1. LIDODERM [Suspect]
     Active Substance: LIDOCAINE
     Indication: FRACTURE PAIN
     Dosage: APPLY ONE 5% PATCH ON CALF AND OTHER UNSPECIFIED AREAS FOR 12 HOURS ON AND 12 HOURS OFF
     Route: 061
     Dates: start: 201510

REACTIONS (4)
  - Accident at home [Unknown]
  - Weight increased [Not Recovered/Not Resolved]
  - Haematoma [Unknown]
  - Pain [Not Recovered/Not Resolved]

NARRATIVE: CASE EVENT DATE: 201602
